FAERS Safety Report 5306632-0 (Version None)
Quarter: 2007Q2

REPORT INFORMATION
  Report Type: 
  Country: None (occurrence: None)
  Receive Date: 20070424
  Receipt Date: 20070413
  Transmission Date: 20071010
  Serious: Yes (Hospitalization, Other)
  Sender: FDA-Public Use
  Company Number: FR-PFIZER INC-2007025530

PATIENT
  Age: 36 Year
  Sex: Male

DRUGS (1)
  1. ZYVOXID TABLET [Suspect]
     Indication: ABSCESS
     Route: 048
     Dates: start: 20061207, end: 20070315

REACTIONS (5)
  - CONDITION AGGRAVATED [None]
  - DIPLOPIA [None]
  - OPTIC NEURITIS [None]
  - VISUAL ACUITY REDUCED [None]
  - VISUAL FIELD DEFECT [None]
